FAERS Safety Report 10066283 (Version 1)
Quarter: 2014Q2

REPORT INFORMATION
  Report Type: Spontaneous
  Country: US (occurrence: US)
  Receive Date: 20140408
  Receipt Date: 20140408
  Transmission Date: 20141212
  Serious: Yes (Hospitalization)
  Sender: FDA-Public Use
  Company Number: US-BRISTOL-MYERS SQUIBB COMPANY-20573697

PATIENT
  Age: 56 Year
  Sex: Female
  Weight: 61.68 kg

DRUGS (2)
  1. GLUCOPHAGE [Suspect]
     Indication: DIABETES MELLITUS
     Dates: start: 201004
  2. LISINOPRIL [Concomitant]
     Dates: start: 1999

REACTIONS (4)
  - Nephrolithiasis [Unknown]
  - Vagus nerve disorder [Unknown]
  - Vomiting [Unknown]
  - Nausea [Unknown]
